FAERS Safety Report 9926042 (Version 1)
Quarter: 2014Q1

REPORT INFORMATION
  Report Type: Spontaneous
  Country: NL (occurrence: NL)
  Receive Date: 20140226
  Receipt Date: 20140226
  Transmission Date: 20141002
  Serious: Yes (Hospitalization)
  Sender: FDA-Public Use
  Company Number: NL-PFIZER INC-2014053187

PATIENT
  Age: 69 Year
  Sex: Female
  Weight: 80 kg

DRUGS (10)
  1. AZITHROMYCIN [Suspect]
     Dosage: 500 MG, 1X/DAY
     Dates: start: 20140210, end: 20140212
  2. EUTHYROX [Concomitant]
     Dosage: 150 UG, 1X/DAY
  3. NITROLINGUAL [Concomitant]
     Dosage: 1 DF, AS NEEDED
  4. INSULIN [Concomitant]
     Dosage: UNK
  5. ISOSORBIDE MONONITRATE [Concomitant]
     Dosage: 60 MG, 1X/DAY
  6. PERINDOPRIL [Concomitant]
     Dosage: 2 MG, 1X/DAY
  7. CALCIUM [Concomitant]
     Dosage: 500 MG, 1X/DAY
  8. METOPROLOL SUCCINATE [Concomitant]
     Dosage: 200 MG, 1X/DAY
  9. EZETROL [Concomitant]
     Dosage: 10 MG, 1X/DAY
  10. ZOCOR [Concomitant]
     Dosage: 40 MG, 1X/DAY

REACTIONS (3)
  - Hypoglycaemia [Recovered/Resolved]
  - Hyperhidrosis [Recovered/Resolved]
  - Malaise [Recovered/Resolved]
